FAERS Safety Report 9351758 (Version 1)
Quarter: 2013Q2

REPORT INFORMATION
  Report Type: Spontaneous
  Country: US (occurrence: US)
  Receive Date: 20130617
  Receipt Date: 20130617
  Transmission Date: 20140414
  Serious: Yes (Other)
  Sender: FDA-Public Use
  Company Number: US-JNJFOC-20130607394

PATIENT
  Age: 16 Year
  Sex: Male
  Weight: 58.97 kg

DRUGS (1)
  1. NEOSPORIN UNSPECIFIED [Suspect]
     Indication: ANIMAL SCRATCH
     Dosage: A QUARTER OF A DIME SIZE, ONCE OR TWICE A DAY
     Route: 061
     Dates: start: 2013, end: 20130609

REACTIONS (2)
  - Genital disorder male [Not Recovered/Not Resolved]
  - Genital swelling [Not Recovered/Not Resolved]
